FAERS Safety Report 23516991 (Version 2)
Quarter: 2024Q1

REPORT INFORMATION
  Report Type: Spontaneous
  Country: GR (occurrence: GR)
  Receive Date: 20240213
  Receipt Date: 20240319
  Transmission Date: 20240410
  Serious: No
  Sender: FDA-Public Use
  Company Number: GR-PFIZER INC-PV202400010141

PATIENT
  Age: 14 Year
  Sex: Male
  Weight: 64 kg

DRUGS (5)
  1. GENOTROPIN [Suspect]
     Active Substance: SOMATROPIN
     Indication: Growth hormone deficiency
     Dosage: 1.6 MG, DAILY (1.6 MG / 7 DAYS / 12 MG PEN)
     Route: 058
     Dates: start: 20240108
  2. STEFAPLEX [Concomitant]
  3. MEDITHYROX [Concomitant]
  4. RETAFORM [Concomitant]
  5. TOPAMAX [Concomitant]
     Active Substance: TOPIRAMATE

REACTIONS (2)
  - Device mechanical issue [Not Recovered/Not Resolved]
  - Device leakage [Unknown]

NARRATIVE: CASE EVENT DATE: 20240122
